FAERS Safety Report 7230501 (Version 2)
Quarter: 2014Q2

REPORT INFORMATION
  Report Type: Spontaneous
  Country: US (occurrence: None)
  Receive Date: 20091208
  Receipt Date: 20140619
  Transmission Date: 20141212
  Serious: Yes (Hospitalization, Other)
  Sender: FDA-Public Use
  Company Number: 2009S1008689

PATIENT
  Age: 56 Year
  Sex: Female
  Weight: 136.53 kg

DRUGS (5)
  1. FLEET PHOSPHO-SODA [Suspect]
     Indication: COLONOSCOPY
     Dosage: 75 ML;TOTAL;PO
     Route: 048
     Dates: start: 20070905, end: 20070906
  2. FLEET ENEMA [Suspect]
     Indication: COLONOSCOPY
     Route: 054
  3. LISINOPRIL/HYDROCHLOROTHIAZIDE [Concomitant]
  4. VYTORIN (SIMVASTATIN, EZETIMIBE) [Concomitant]
  5. DETROL LA (TOLTERODINE L-TARTRATE) [Concomitant]

REACTIONS (5)
  - Renal impairment [None]
  - Renal failure [None]
  - Nausea [None]
  - Vomiting [None]
  - Diarrhoea [None]
